FAERS Safety Report 10163493 (Version 1)
Quarter: 2014Q2

REPORT INFORMATION
  Report Type: Spontaneous
  Country: BR (occurrence: BR)
  Receive Date: 20140509
  Receipt Date: 20140509
  Transmission Date: 20141212
  Serious: Yes (Hospitalization, Other)
  Sender: FDA-Public Use
  Company Number: BR-ELI_LILLY_AND_COMPANY-BR201404009776

PATIENT
  Sex: Female

DRUGS (1)
  1. HUMULIN N [Suspect]
     Indication: DIABETES MELLITUS
     Dosage: UNK, UNKNOWN
     Route: 058

REACTIONS (7)
  - Blood glucose abnormal [Recovered/Resolved]
  - Erysipelas [Unknown]
  - Systemic lupus erythematosus [Unknown]
  - Skin striae [Unknown]
  - Cushing^s syndrome [Unknown]
  - Hypertension [Unknown]
  - Injection site pain [Unknown]
